FAERS Safety Report 6401935-0 (Version None)
Quarter: 2009Q4

REPORT INFORMATION
  Report Type: 
  Country: None (occurrence: None)
  Receive Date: 20091015
  Receipt Date: 20091006
  Transmission Date: 20100525
  Serious: Yes (Hospitalization)
  Sender: FDA-Public Use
  Company Number: A0810045A

PATIENT
  Age: 64 Year
  Sex: Male
  Weight: 106.8 kg

DRUGS (7)
  1. AVANDIA [Suspect]
     Indication: TYPE 2 DIABETES MELLITUS
     Dosage: 8MG PER DAY
     Dates: start: 20030101, end: 20040101
  2. GLUCOPHAGE [Concomitant]
  3. GLUCOTROL XL [Concomitant]
  4. PRINIVIL [Concomitant]
  5. VERAPAMIL [Concomitant]
  6. PREVACID [Concomitant]
  7. PROCARDIA XL [Concomitant]

REACTIONS (1)
  - CEREBROVASCULAR ACCIDENT [None]
